FAERS Safety Report 11686042 (Version 1)
Quarter: 2015Q4

REPORT INFORMATION
  Report Type: Spontaneous
  Country: GB (occurrence: GB)
  Receive Date: 20151030
  Receipt Date: 20151030
  Transmission Date: 20160304
  Serious: Yes (Other)
  Sender: FDA-Public Use
  Company Number: GB-TEVA-604359ISR

PATIENT
  Sex: Male

DRUGS (5)
  1. ULTIVA [Concomitant]
     Active Substance: REMIFENTANIL HYDROCHLORIDE
     Indication: ANALGESIC THERAPY
     Route: 065
     Dates: start: 20111121, end: 20111121
  2. PROSTIGMINA [Concomitant]
     Active Substance: NEOSTIGMINE BROMIDE
     Indication: ANAESTHESIA
     Route: 065
     Dates: start: 20111121, end: 20111121
  3. PRAMIPEXOLE. [Suspect]
     Active Substance: PRAMIPEXOLE
     Indication: PARKINSON^S DISEASE
     Dosage: 1.05 MILLIGRAM DAILY;
     Route: 065
     Dates: start: 201010
  4. PROPOFOL. [Concomitant]
     Active Substance: PROPOFOL
     Indication: ANAESTHESIA
     Route: 065
     Dates: start: 20111121, end: 20111121
  5. SEVORANE [Concomitant]
     Active Substance: SEVOFLURANE
     Indication: ANAESTHESIA
     Route: 065
     Dates: start: 20111121, end: 20111121

REACTIONS (1)
  - Torticollis [Recovering/Resolving]

NARRATIVE: CASE EVENT DATE: 20111122
